FAERS Safety Report 4395458-0 (Version None)
Quarter: 2004Q3

REPORT INFORMATION
  Report Type: 
  Country: None (occurrence: None)
  Receive Date: 20040713
  Receipt Date: 20040702
  Transmission Date: 20050211
  Serious: Yes (Other)
  Sender: FDA-Public Use
  Company Number: PHBS2004BE08951

PATIENT
  Sex: Female

DRUGS (2)
  1. DIOVAN [Suspect]
     Dosage: 160 MG/DAY
     Route: 048
  2. CAPTOPRIL [Concomitant]

REACTIONS (2)
  - RENAL ARTERY STENOSIS [None]
  - RENAL FAILURE [None]
